FAERS Safety Report 9372110 (Version 1)
Quarter: 2013Q2

REPORT INFORMATION
  Report Type: Spontaneous
  Country: US (occurrence: US)
  Receive Date: 20130627
  Receipt Date: 20130627
  Transmission Date: 20140414
  Serious: No
  Sender: FDA-Public Use
  Company Number: US-BAYER-2013-074549

PATIENT
  Age: 53 Year
  Sex: Male

DRUGS (1)
  1. MAGNEVIST [Suspect]
     Indication: NUCLEAR MAGNETIC RESONANCE IMAGING
     Dosage: 29 ML, ONCE
     Route: 042
     Dates: start: 20130614, end: 20130614

REACTIONS (3)
  - Pharyngeal hypoaesthesia [Recovered/Resolved]
  - Choking sensation [Recovered/Resolved]
  - Throat irritation [Recovered/Resolved]
